FAERS Safety Report 22155086 (Version 3)
Quarter: 2023Q2

REPORT INFORMATION
  Report Type: Report from Study
  Country: AR (occurrence: AR)
  Receive Date: 20230330
  Receipt Date: 20230505
  Transmission Date: 20230721
  Serious: Yes (Death, Hospitalization)
  Sender: FDA-Public Use
  Company Number: AR-002147023-NVSC2022AR234900

PATIENT
  Age: 47 Year
  Sex: Female

DRUGS (1)
  1. KISQALI [Suspect]
     Active Substance: RIBOCICLIB
     Indication: Breast cancer metastatic
     Dosage: 600 MG, QD
     Route: 048
     Dates: start: 20220905

REACTIONS (11)
  - Metastases to liver [Fatal]
  - Metastases to lung [Fatal]
  - Respiratory disorder [Fatal]
  - Fluid retention [Fatal]
  - Peripheral swelling [Fatal]
  - Swelling face [Fatal]
  - Drug ineffective [Fatal]
  - General physical health deterioration [Unknown]
  - Platelet count decreased [Unknown]
  - Viral infection [Unknown]
  - White blood cell count decreased [Unknown]

NARRATIVE: CASE EVENT DATE: 20230422
